FAERS Safety Report 21640898 (Version 2)
Quarter: 2024Q4

REPORT INFORMATION
  Report Type: Other
  Country: GT (occurrence: GT)
  Receive Date: 20221125
  Receipt Date: 20241023
  Transmission Date: 20250115
  Serious: Yes (Hospitalization, Disabling, Other)
  Sender: TOLMAR
  Company Number: GT-TOLMAR, INC.-22GT037353

PATIENT
  Sex: Male

DRUGS (3)
  1. ELIGARD [Suspect]
     Active Substance: LEUPROLIDE ACETATE
     Indication: Prostate cancer
     Dosage: 45 MILLIGRAM, Q 6 MONTH
     Route: 058
  2. ELIGARD [Suspect]
     Active Substance: LEUPROLIDE ACETATE
     Dosage: 45 MILLIGRAM, Q 6 MONTH
     Route: 058
  3. UNSPECIFIED INGREDIENT [Concomitant]
     Active Substance: UNSPECIFIED INGREDIENT
     Indication: Product used for unknown indication

REACTIONS (7)
  - Groin infection [Not Recovered/Not Resolved]
  - Metastases to bone [Recovering/Resolving]
  - Malignant spinal cord compression [Recovering/Resolving]
  - Procedural complication [Unknown]
  - Vascular injury [Unknown]
  - Paraplegia [Recovering/Resolving]
  - Hypoaesthesia [Recovering/Resolving]
